FAERS Safety Report 7042139-0 (Version None)
Quarter: 2010Q4

REPORT INFORMATION
  Report Type: 
  Country: None (occurrence: None)
  Receive Date: 20101013
  Receipt Date: 20090915
  Transmission Date: 20110411
  Serious: No
  Sender: FDA-Public Use
  Company Number: US-ASTRAZENECA-2009SE13837

PATIENT
  Age: 7 Year
  Sex: Female
  Weight: 26.3 kg

DRUGS (4)
  1. SYMBICORT [Suspect]
     Indication: ASTHMA
     Route: 055
     Dates: start: 20090914
  2. RHINOCORT [Suspect]
     Route: 045
  3. SINGULAIR [Concomitant]
  4. ALLEGRA [Concomitant]

REACTIONS (4)
  - ABDOMINAL PAIN UPPER [None]
  - BACK PAIN [None]
  - IRRITABILITY [None]
  - VOMITING [None]
